FAERS Safety Report 6936227-4 (Version None)
Quarter: 2010Q3

REPORT INFORMATION
  Report Type: 
  Country: None (occurrence: None)
  Receive Date: 20100817
  Receipt Date: 20100616
  Transmission Date: 20110219
  Serious: No
  Sender: FDA-Public Use
  Company Number: WAES 1006USA02727

PATIENT
  Age: 51 Year
  Sex: Male

DRUGS (6)
  1. ISENTRESS [Suspect]
     Indication: HIV INFECTION
     Dosage: 400 MG/BID/PO
     Route: 048
     Dates: start: 20081001
  2. ALDARA [Concomitant]
  3. TRUVADA [Concomitant]
  4. FINASTERIDE [Concomitant]
  5. METOPROLOL TARTRATE [Concomitant]
  6. PRAVASTATIN SODIUM [Concomitant]

REACTIONS (1)
  - BLOOD CREATINE PHOSPHOKINASE INCREASED [None]
